FAERS Safety Report 24057577 (Version 1)
Quarter: 2024Q3

REPORT INFORMATION
  Report Type: Spontaneous
  Country: CA (occurrence: CA)
  Receive Date: 20240706
  Receipt Date: 20240706
  Transmission Date: 20241016
  Serious: Yes (Other)
  Sender: ACCORD
  Company Number: None

PATIENT
  Age: 64 Year
  Sex: Female

DRUGS (2)
  1. METHOTREXATE SODIUM [Suspect]
     Active Substance: METHOTREXATE SODIUM
     Indication: Sjogren^s syndrome
     Route: 048
  2. METHOTREXATE SODIUM [Suspect]
     Active Substance: METHOTREXATE SODIUM
     Indication: Sjogren^s syndrome
     Route: 048

REACTIONS (6)
  - Drug ineffective for unapproved indication [Unknown]
  - Pneumonia [Unknown]
  - Infection [Unknown]
  - Alveolitis [Unknown]
  - Off label use [Unknown]
  - Transfusion-related circulatory overload [Unknown]
